FAERS Safety Report 9563085 (Version 1)
Quarter: 2013Q3

REPORT INFORMATION
  Report Type: Spontaneous
  Country: US (occurrence: US)
  Receive Date: 20130927
  Receipt Date: 20130927
  Transmission Date: 20140515
  Serious: No
  Sender: FDA-Public Use
  Company Number: US-BRISTOL-MYERS SQUIBB COMPANY-17058033

PATIENT
  Age: 50 Year
  Sex: Female

DRUGS (2)
  1. ONGLYZA TABS [Suspect]
     Indication: TYPE 2 DIABETES MELLITUS
  2. LISINOPRIL [Concomitant]

REACTIONS (2)
  - Headache [Unknown]
  - Tremor [Unknown]
